FAERS Safety Report 7864949-X (Version None)
Quarter: 2011Q4

REPORT INFORMATION
  Report Type: 
  Country: None (occurrence: None)
  Receive Date: 20111028
  Receipt Date: 20111020
  Transmission Date: 20120403
  Serious: Yes (Other)
  Sender: FDA-Public Use
  Company Number: US-BAYER-2011-102785

PATIENT
  Sex: Female

DRUGS (1)
  1. MIRENA [Suspect]
     Dosage: UNK
     Dates: start: 20090101

REACTIONS (5)
  - AMENORRHOEA [None]
  - OSTEITIS [None]
  - PELVIC PAIN [None]
  - HYPOMENORRHOEA [None]
  - MEDICAL DEVICE COMPLICATION [None]
